FAERS Safety Report 8078899-X (Version None)
Quarter: 2012Q1

REPORT INFORMATION
  Report Type: 
  Country: None (occurrence: None)
  Receive Date: 20120124
  Receipt Date: 20120109
  Transmission Date: 20120608
  Serious: Yes (Death)
  Sender: FDA-Public Use
  Company Number: JPI-P-002951

PATIENT
  Age: 36 Year
  Sex: Male

DRUGS (2)
  1. XYREM [Suspect]
     Indication: NARCOLEPSY
     Dosage: ORAL
     Route: 048
     Dates: end: 20080105
  2. UNSPECIFIED ANTIDEPRESSANT [Concomitant]

REACTIONS (2)
  - ACCIDENTAL POISONING [None]
  - OVERDOSE [None]
